FAERS Safety Report 14163034 (Version 1)
Quarter: 2017Q4

REPORT INFORMATION
  Report Type: Report from Study
  Country: US (occurrence: US)
  Receive Date: 20171106
  Receipt Date: 20171106
  Transmission Date: 20180321
  Serious: Yes (Other)
  Sender: FDA-Public Use
  Company Number: US-VIFOR (INTERNATIONAL) INC.-VIT-2017-11814

PATIENT
  Age: 62 Year
  Sex: Female

DRUGS (9)
  1. SODIUM BICARBONATE. [Concomitant]
     Active Substance: SODIUM BICARBONATE
  2. SUCRALFATE. [Concomitant]
     Active Substance: SUCRALFATE
  3. VELTASSA [Suspect]
     Active Substance: PATIROMER
     Indication: HYPERKALAEMIA
     Route: 048
     Dates: start: 20170825, end: 20171023
  4. EFFEXOR [Concomitant]
     Active Substance: VENLAFAXINE HYDROCHLORIDE
  5. CALCITRIOL. [Concomitant]
     Active Substance: CALCITRIOL
  6. ATENOLOL. [Concomitant]
     Active Substance: ATENOLOL
  7. NEXIUM [Concomitant]
     Active Substance: ESOMEPRAZOLE MAGNESIUM
  8. LEVOCETIRIZINE [Concomitant]
     Active Substance: LEVOCETIRIZINE
  9. FOLBIC [Concomitant]
     Active Substance: CYANOCOBALAMIN\FOLIC ACID\PYRIDOXINE

REACTIONS (1)
  - Dialysis [Recovered/Resolved]

NARRATIVE: CASE EVENT DATE: 201710
